FAERS Safety Report 10058053 (Version 1)
Quarter: 2014Q2

REPORT INFORMATION
  Report Type: Spontaneous
  Country: IT (occurrence: None)
  Receive Date: 20140402
  Receipt Date: 20140402
  Transmission Date: 20141212
  Serious: Yes (Other)
  Sender: FDA-Public Use
  Company Number: NSR_01532_2014

PATIENT
  Age: 32 Year
  Sex: Female
  Weight: 50 kg

DRUGS (3)
  1. TRAMADOL [Suspect]
     Indication: ABDOMINAL PAIN
     Route: 048
  2. CITALOPRAM [Concomitant]
  3. DIAZEPAM [Concomitant]

REACTIONS (22)
  - Drug abuse [None]
  - Constipation [None]
  - Urinary retention [None]
  - Fatigue [None]
  - Decreased appetite [None]
  - Insomnia [None]
  - Insomnia [None]
  - Depression [None]
  - Anxiety [None]
  - Nervousness [None]
  - Abdominal pain [None]
  - Toxicologic test abnormal [None]
  - Drug withdrawal syndrome [None]
  - Agitation [None]
  - Tachycardia [None]
  - Asthenia [None]
  - Headache [None]
  - Hyperhidrosis [None]
  - Tremor [None]
  - Flushing [None]
  - Nausea [None]
  - Weight decreased [None]
